FAERS Safety Report 9632343 (Version 1)
Quarter: 2013Q4

REPORT INFORMATION
  Report Type: Spontaneous
  Country: US (occurrence: US)
  Receive Date: 20131018
  Receipt Date: 20131018
  Transmission Date: 20140711
  Serious: Yes (Death, Other)
  Sender: FDA-Public Use
  Company Number: US-ACTAVIS-2013-18283

PATIENT
  Age: 31 Year
  Sex: Female

DRUGS (1)
  1. HYDROCODONE BITARTRATE/ACETAMINOPHEN 5/500 (WATSON LABORATORIES) [Suspect]
     Indication: INJURY
     Dosage: UNK, UNKNOWN
     Route: 048
     Dates: start: 2004, end: 2012

REACTIONS (5)
  - Death [Fatal]
  - Accidental overdose [Fatal]
  - Dependence [Fatal]
  - Rehabilitation therapy [Fatal]
  - Hospitalisation [Fatal]
